FAERS Safety Report 17804412 (Version 1)
Quarter: 2020Q2

REPORT INFORMATION
  Report Type: Spontaneous
  Country: NO (occurrence: NO)
  Receive Date: 20200519
  Receipt Date: 20200519
  Transmission Date: 20200714
  Serious: Yes (Death, Other)
  Sender: FDA-Public Use
  Company Number: NO-MYLANLABS-2020M1049217

PATIENT
  Sex: Female

DRUGS (1)
  1. FURADANTIN [Suspect]
     Active Substance: NITROFURANTOIN
     Indication: URINARY TRACT INFECTION
     Dosage: UNK
     Dates: start: 20170214

REACTIONS (6)
  - Drug hypersensitivity [Unknown]
  - Malaise [Unknown]
  - Headache [Unknown]
  - Respiratory failure [Fatal]
  - Pneumonia [Unknown]
  - Vomiting [Unknown]
